FAERS Safety Report 6971758-2 (Version None)
Quarter: 2010Q3

REPORT INFORMATION
  Report Type: 
  Country: None (occurrence: None)
  Receive Date: 20100903
  Receipt Date: 20100825
  Transmission Date: 20110219
  Serious: Yes (Hospitalization)
  Sender: FDA-Public Use
  Company Number: JP-SOLVAY-00310005109

PATIENT
  Sex: Male

DRUGS (1)
  1. LUVOX [Suspect]
     Indication: OBSESSIVE-COMPULSIVE DISORDER
     Dosage: 75 MILLIGRAM(S) ORAL
     Route: 048
     Dates: start: 20100101, end: 20100802

REACTIONS (1)
  - ERYTHEMA MULTIFORME [None]
